FAERS Safety Report 7420776-9 (Version None)
Quarter: 2011Q2

REPORT INFORMATION
  Report Type: 
  Country: None (occurrence: None)
  Receive Date: 20110408
  Receipt Date: 20110323
  Transmission Date: 20111010
  Serious: Yes (Hospitalization)
  Sender: FDA-Public Use
  Company Number: 1000019697

PATIENT
  Age: 82 Year
  Sex: Male

DRUGS (9)
  1. DOXAZOSIN MESYLATE [Concomitant]
  2. ARICEPT [Suspect]
     Dosage: 5 MG (5 MG, 1 IN 1 D), ORAL
     Route: 048
     Dates: start: 20090531, end: 20100520
  3. TROMBYL (ACETYLSALICYLIC ACID) (ACETYLSALICYLIC ACID) [Concomitant]
  4. ESCITALOPRAM [Suspect]
     Dosage: 30 MG (30 MG, 1 IN 1 D), ORAL
     Route: 048
     Dates: start: 20100214, end: 20100705
  5. ALVEDON (PARACETAMOL) (PARACETAMOL) [Concomitant]
  6. NITROMEX (GLYCERYL TRINITRATE) (GLYCERYL TRINITRATE) [Concomitant]
  7. ALLOPURINOL [Concomitant]
  8. SIMVASTATIN [Concomitant]
  9. FURIX (FUROSEMIDE) (FUROSEMIDE) [Concomitant]

REACTIONS (2)
  - CONVULSION [None]
  - OVERDOSE [None]
